FAERS Safety Report 10651399 (Version 5)
Quarter: 2020Q3

REPORT INFORMATION
  Report Type: Report from Study
  Country: US (occurrence: US)
  Receive Date: 20141215
  Receipt Date: 20150807
  Transmission Date: 20201105
  Serious: Yes (Hospitalization, Other)
  Sender: FDA-Public Use
  Company Number: US-JNJFOC-20141207278

PATIENT
  Age: 59 Year
  Sex: Female
  Weight: 80 kg

DRUGS (18)
  1. ACYCLOVIR. [Concomitant]
     Active Substance: ACYCLOVIR
  2. ONDANSETRON [Concomitant]
     Active Substance: ONDANSETRON
  3. POTASSIUM CHLORIDE. [Concomitant]
     Active Substance: POTASSIUM CHLORIDE
  4. POSACONAZOLE [Concomitant]
     Active Substance: POSACONAZOLE
  5. TRIAMCINOLONE [Concomitant]
     Active Substance: TRIAMCINOLONE
  6. IBRUTINIB [Suspect]
     Active Substance: IBRUTINIB
     Route: 048
  7. CLOBETASOL [Concomitant]
     Active Substance: CLOBETASOL
  8. DILTIAZEM. [Concomitant]
     Active Substance: DILTIAZEM
  9. MULTIPLE VITAMIN [Concomitant]
     Active Substance: VITAMINS
  10. NEULASTA [Concomitant]
     Active Substance: PEGFILGRASTIM
  11. PSEUDOEPHEDRINE HYDROCHLORIDE. [Concomitant]
     Active Substance: PSEUDOEPHEDRINE HYDROCHLORIDE
  12. IBRUTINIB [Suspect]
     Active Substance: IBRUTINIB
     Indication: CHRONIC LYMPHOCYTIC LEUKAEMIA
     Route: 048
     Dates: start: 20130409, end: 20141111
  13. DIPHENHYDRAMINE. [Concomitant]
     Active Substance: DIPHENHYDRAMINE
  14. LORAZEPAM. [Concomitant]
     Active Substance: LORAZEPAM
  15. PYRIDOXINE [Concomitant]
     Active Substance: PYRIDOXINE
  16. PROCRIT [Concomitant]
     Active Substance: ERYTHROPOIETIN
  17. CYCLOBENZAPRINE. [Concomitant]
     Active Substance: CYCLOBENZAPRINE
  18. METOPROLOL. [Concomitant]
     Active Substance: METOPROLOL

REACTIONS (1)
  - Subdural haematoma [Recovered/Resolved]

NARRATIVE: CASE EVENT DATE: 20141120
